FAERS Safety Report 7315560-0 (Version None)
Quarter: 2011Q1

REPORT INFORMATION
  Report Type: 
  Country: None (occurrence: None)
  Receive Date: 20110218
  Receipt Date: 20110218
  Transmission Date: 20110831
  Serious: Yes (Hospitalization)
  Sender: FDA-Public Use
  Company Number: None

PATIENT
  Age: 52 Year
  Sex: Male
  Weight: 88.6 kg

DRUGS (1)
  1. GOODY POWDER [Suspect]
     Indication: MUSCULOSKELETAL PAIN
     Dosage: PO RECENT
     Route: 048

REACTIONS (5)
  - SYNCOPE [None]
  - UPPER GASTROINTESTINAL HAEMORRHAGE [None]
  - DUODENAL ULCER [None]
  - HAEMATOCRIT DECREASED [None]
  - CONDITION AGGRAVATED [None]
